FAERS Safety Report 15957968 (Version 2)
Quarter: 2019Q1

REPORT INFORMATION
  Report Type: Spontaneous
  Country: DE (occurrence: DE)
  Receive Date: 20190213
  Receipt Date: 20190225
  Transmission Date: 20190417
  Serious: Yes (Other)
  Sender: FDA-Public Use
  Company Number: DE-PFIZER INC-2019059905

PATIENT
  Age: 47 Year
  Sex: Female

DRUGS (2)
  1. RELVAR [Concomitant]
     Active Substance: FLUTICASONE FUROATE\VILANTEROL TRIFENATATE
     Indication: ASTHMA
     Dosage: 184/22, 1X/DAY
     Route: 055
     Dates: start: 20180910
  2. UNACID (AMPICILLIN SODIUM\SULBACTAM SODIUM) [Suspect]
     Active Substance: AMPICILLIN SODIUM\SULBACTAM SODIUM
     Indication: PNEUMONIA
     Dosage: 3 G, 3X/DAY
     Route: 042
     Dates: start: 20190123, end: 20190128

REACTIONS (11)
  - Skin reaction [Unknown]
  - Pruritus [Recovering/Resolving]
  - Measles [Unknown]
  - Rash morbilliform [Recovering/Resolving]
  - Oedema peripheral [Unknown]
  - Feeling hot [Unknown]
  - Urticaria [Recovered/Resolved]
  - Oedema [Unknown]
  - Rash erythematous [Unknown]
  - Orbital oedema [Unknown]
  - Haemorrhage [Unknown]

NARRATIVE: CASE EVENT DATE: 20190203
